FAERS Safety Report 8458390-9 (Version None)
Quarter: 2012Q2

REPORT INFORMATION
  Report Type: 
  Country: None (occurrence: None)
  Receive Date: 20120622
  Receipt Date: 20120614
  Transmission Date: 20120825
  Serious: Yes (Hospitalization)
  Sender: FDA-Public Use
  Company Number: CA-UCBSA-059790

PATIENT
  Age: 58 Year
  Sex: Female

DRUGS (9)
  1. ATIVAN [Concomitant]
     Route: 048
  2. ASPIRIN [Concomitant]
     Route: 048
  3. CELEBREX [Concomitant]
     Indication: RHEUMATOID ARTHRITIS
     Route: 048
  4. ELAVIL [Concomitant]
     Indication: FIBROMYALGIA
     Route: 048
  5. LYRICA [Concomitant]
     Indication: FIBROMYALGIA
     Route: 048
  6. TAMOXIFEN CITRATE [Concomitant]
     Indication: BREAST CANCER
     Route: 048
  7. CIMZIA [Suspect]
     Indication: RHEUMATOID ARTHRITIS
     Route: 058
     Dates: start: 20110404, end: 20120426
  8. ARAVA [Concomitant]
     Indication: RHEUMATOID ARTHRITIS
     Route: 048
  9. ROBAXIN [Concomitant]
     Indication: FIBROMYALGIA
     Route: 048

REACTIONS (2)
  - WOUND INFECTION PSEUDOMONAS [None]
  - BREAST NECROSIS [None]
